FAERS Safety Report 25164158 (Version 2)
Quarter: 2025Q2

REPORT INFORMATION
  Report Type: Spontaneous
  Country: US (occurrence: US)
  Receive Date: 20250405
  Receipt Date: 20250428
  Transmission Date: 20250716
  Serious: Yes (Life-Threatening, Hospitalization, Other)
  Sender: LUPIN
  Company Number: US-LUPIN PHARMACEUTICALS INC.-2025-02891

PATIENT
  Age: 64 Year
  Sex: Female

DRUGS (5)
  1. GABAPENTIN [Suspect]
     Active Substance: GABAPENTIN
     Indication: Back pain
     Route: 065
  2. MORPHINE [Suspect]
     Active Substance: MORPHINE
     Indication: Back pain
     Route: 065
  3. MORPHINE [Suspect]
     Active Substance: MORPHINE
     Dosage: 15 MILLIGRAM, QID
     Route: 065
  4. METHADONE [Suspect]
     Active Substance: METHADONE HYDROCHLORIDE
     Indication: Back pain
     Dosage: 10 MILLIGRAM, TID
     Route: 065
  5. METHADONE [Suspect]
     Active Substance: METHADONE HYDROCHLORIDE
     Dosage: 40 MILLIGRAM, QD (IN TWO DIVIDED STANDING DOSES)
     Route: 065

REACTIONS (2)
  - Respiratory failure [Unknown]
  - Drug ineffective [Unknown]
